FAERS Safety Report 7038833-8 (Version None)
Quarter: 2010Q4

REPORT INFORMATION
  Report Type: 
  Country: None (occurrence: None)
  Receive Date: 20101012
  Receipt Date: 20101004
  Transmission Date: 20110411
  Serious: No
  Sender: FDA-Public Use
  Company Number: US-BIOGENIDEC-2010BI034846

PATIENT
  Sex: Female

DRUGS (2)
  1. TYSABRI [Suspect]
     Indication: MULTIPLE SCLEROSIS
     Route: 042
     Dates: start: 20070125, end: 20081119
  2. TYSABRI [Suspect]
     Route: 042
     Dates: start: 20090928

REACTIONS (2)
  - COGNITIVE DISORDER [None]
  - MUSCULAR WEAKNESS [None]
